FAERS Safety Report 11340915 (Version 1)
Quarter: 2015Q3

REPORT INFORMATION
  Report Type: Spontaneous
  Country: US (occurrence: US)
  Receive Date: 20150805
  Receipt Date: 20150805
  Transmission Date: 20151125
  Serious: No
  Sender: FDA-Public Use
  Company Number: US-JNJFOC-20150202116

PATIENT
  Sex: Male
  Weight: 83.92 kg

DRUGS (2)
  1. NIZORAL [Suspect]
     Active Substance: KETOCONAZOLE
     Indication: SKIN DISORDER
     Dosage: 1 APPLICATION IN 10 MINUTES
     Route: 062
  2. NIZORAL [Suspect]
     Active Substance: KETOCONAZOLE
     Indication: SKIN DISORDER
     Dosage: 1 APPLICATION IN 5 MINUTES
     Route: 062

REACTIONS (5)
  - Rash pustular [Recovering/Resolving]
  - Expired product administered [Unknown]
  - Pain of skin [Recovering/Resolving]
  - Application site pruritus [Recovering/Resolving]
  - Hair texture abnormal [Recovering/Resolving]
